FAERS Safety Report 11043883 (Version 1)
Quarter: 2015Q2

REPORT INFORMATION
  Report Type: Spontaneous
  Country: US (occurrence: US)
  Receive Date: 20150417
  Receipt Date: 20150417
  Transmission Date: 20150821
  Serious: Yes (Hospitalization, Other)
  Sender: FDA-Public Use
  Company Number: US-AMGEN-USASP2015035249

PATIENT
  Age: 56 Year
  Sex: Female

DRUGS (1)
  1. PROLIA [Suspect]
     Active Substance: DENOSUMAB
     Indication: PRODUCT USED FOR UNKNOWN INDICATION
     Dosage: UNK
     Route: 065
     Dates: start: 201210

REACTIONS (5)
  - Arthropod bite [Unknown]
  - Septic shock [Unknown]
  - Nocardiosis [Unknown]
  - Fracture [Unknown]
  - Infected bites [Unknown]

NARRATIVE: CASE EVENT DATE: 201211
